FAERS Safety Report 5951863-X (Version None)
Quarter: 2008Q4

REPORT INFORMATION
  Report Type: 
  Country: None (occurrence: None)
  Receive Date: 20081113
  Receipt Date: 20081106
  Transmission Date: 20090506
  Serious: Yes (Hospitalization)
  Sender: FDA-Public Use
  Company Number: NL-ELI_LILLY_AND_COMPANY-NL200811001566

PATIENT
  Sex: Female
  Weight: 120 kg

DRUGS (5)
  1. PROZAC [Suspect]
     Indication: DEPRESSION
     Dosage: 40 MG, UNK
     Route: 048
     Dates: start: 20081015
  2. SERTRALINE [Concomitant]
     Dates: start: 20070101, end: 20081014
  3. LORAZEPAM [Concomitant]
  4. OXAZEPAM [Concomitant]
  5. DIPIPERON [Concomitant]

REACTIONS (7)
  - AGITATION [None]
  - ATTENTION DEFICIT/HYPERACTIVITY DISORDER [None]
  - DEPRESSION [None]
  - MANIA [None]
  - PERSONALITY DISORDER [None]
  - RESTLESSNESS [None]
  - SLEEP DISORDER [None]
